FAERS Safety Report 20933441 (Version 3)
Quarter: 2022Q3

REPORT INFORMATION
  Report Type: Report from Study
  Country: US (occurrence: US)
  Receive Date: 20220608
  Receipt Date: 20220819
  Transmission Date: 20221027
  Serious: Yes (Death, Life-Threatening, Hospitalization, Other)
  Sender: FDA-Public Use
  Company Number: US-GILEAD-2022-0583694

PATIENT
  Age: 47 Year
  Sex: Male
  Weight: 66.7 kg

DRUGS (19)
  1. REMDESIVIR [Suspect]
     Active Substance: REMDESIVIR
     Indication: COVID-19
     Dosage: 200 MG, QD
     Route: 042
     Dates: start: 20211106, end: 20211106
  2. REMDESIVIR [Suspect]
     Active Substance: REMDESIVIR
     Dosage: 100 MG, QD
     Route: 042
     Dates: start: 20211107, end: 20211110
  3. CYPROHEPTADINE [Suspect]
     Active Substance: CYPROHEPTADINE
     Indication: COVID-19
     Dosage: 8 MG, Q8H (TID)
     Route: 050
     Dates: start: 20211108, end: 20211118
  4. DEXAMETHASONE [Concomitant]
     Active Substance: DEXAMETHASONE
     Indication: COVID-19
     Dosage: 6 MG, QD
     Route: 042
     Dates: start: 20211106, end: 20211116
  5. DEXAMETHASONE [Concomitant]
     Active Substance: DEXAMETHASONE
     Dosage: LESS THAN OR EQUAL TO 8 MG QD PRIOR TO STUDY ENROLLMENT, TOTAL OF 3 DAYS IN HOSPITAL
     Route: 042
  6. ACETAMINOPHEN [Concomitant]
     Active Substance: ACETAMINOPHEN
     Indication: Pain
     Dosage: 650 MG, Q4HR AS NEEDED
     Route: 048
     Dates: start: 20211106, end: 20211119
  7. ARFORMOTEROL [Concomitant]
     Active Substance: ARFORMOTEROL
     Indication: COVID-19
     Dosage: 15 UG, BID
     Route: 055
     Dates: start: 20211113, end: 20211123
  8. AZITHROMYCIN [Concomitant]
     Active Substance: AZITHROMYCIN
     Dosage: 500 MG, QD
     Route: 048
     Dates: start: 20211108, end: 20211113
  9. BUDESONIDE [Concomitant]
     Active Substance: BUDESONIDE
     Indication: COVID-19
     Dosage: 0.5 MG, BID
     Route: 055
     Dates: start: 20211113, end: 20211123
  10. FAMOTIDINE [Concomitant]
     Active Substance: FAMOTIDINE
     Dosage: 20 MG, BID
     Route: 042
     Dates: start: 20211106, end: 20211122
  11. IBUPROFEN [Concomitant]
     Active Substance: IBUPROFEN
     Dosage: 600 MG, ONCE
     Route: 048
     Dates: start: 20211106
  12. IPRATROPIUM [Concomitant]
     Active Substance: IPRATROPIUM
     Indication: Wheezing
     Dosage: 3 ML, Q4HR AS NEEDED
     Route: 055
     Dates: start: 20211106, end: 20211123
  13. LORAZEPAM [Concomitant]
     Active Substance: LORAZEPAM
     Dosage: 1 MG, Q4HR AS NEEDED
     Route: 042
     Dates: start: 20211106, end: 20211123
  14. NOREPINEPHRINE [Concomitant]
     Active Substance: NOREPINEPHRINE
     Dosage: 2.5 ?G/MIN AT 4.69 ML/H IV CONTINUOUS DRIP
     Route: 042
  15. PROMETHAZINE HYDROCHLORIDE AND CODEINE PHOSPHATE [Concomitant]
     Active Substance: CODEINE PHOSPHATE\PROMETHAZINE HYDROCHLORIDE
     Dosage: 5 ML, Q6H
     Route: 050
     Dates: start: 20211107, end: 20211115
  16. TOCILIZUMAB [Concomitant]
     Active Substance: TOCILIZUMAB
     Dosage: 600 MG, ONCE AT 100 ML/H
     Route: 042
  17. KCL [Concomitant]
     Active Substance: POTASSIUM CHLORIDE
     Indication: Hypokalaemia
     Dosage: 20 MEQ
     Dates: start: 20211106
  18. MORPHINE [Concomitant]
     Active Substance: MORPHINE
     Indication: Pain
     Dosage: UNK
     Dates: start: 20211114
  19. ENOXAPARIN [Concomitant]
     Active Substance: ENOXAPARIN
     Indication: Thrombosis prophylaxis
     Dosage: 40 MG
     Route: 058
     Dates: start: 20211106

REACTIONS (4)
  - Respiratory arrest [Fatal]
  - Cerebrovascular accident [Fatal]
  - Pulmonary hypertension [Not Recovered/Not Resolved]
  - Vomiting [Recovered/Resolved]

NARRATIVE: CASE EVENT DATE: 20211114
